FAERS Safety Report 4887797-1 (Version None)
Quarter: 2006Q1

REPORT INFORMATION
  Report Type: 
  Country: None (occurrence: None)
  Receive Date: 20060123
  Receipt Date: 20050118
  Transmission Date: 20060701
  Serious: Yes (Hospitalization)
  Sender: FDA-Public Use
  Company Number: GB-ROCHE-392959

PATIENT
  Weight: 70.8 kg

DRUGS (4)
  1. KYTRIL [Suspect]
     Route: 048
     Dates: start: 20050110, end: 20050215
  2. CAPECITABINE [Suspect]
     Indication: RECTAL CANCER
     Dosage: AS PER PROTOCOL
     Route: 048
     Dates: start: 20041214, end: 20050118
  3. IRINOTECAN HCL [Suspect]
     Indication: RECTAL CANCER
     Dosage: INTRAVENOUS INFUSION AS PER STUDY PROTOCOL
     Route: 042
     Dates: start: 20041214, end: 20050111
  4. MOTILIUM [Suspect]
     Route: 048
     Dates: start: 20041214, end: 20050225

REACTIONS (3)
  - DECREASED APPETITE [None]
  - NAUSEA [None]
  - WEIGHT DECREASED [None]
